FAERS Safety Report 19441908 (Version 1)
Quarter: 2021Q2

REPORT INFORMATION
  Report Type: Spontaneous
  Country: GR (occurrence: GR)
  Receive Date: 20210621
  Receipt Date: 20210621
  Transmission Date: 20210717
  Serious: Yes (Hospitalization, Other)
  Sender: FDA-Public Use
  Company Number: GR-MACLEODS PHARMACEUTICALS US LTD-MAC2021031363

PATIENT

DRUGS (10)
  1. METOPROLOL. [Concomitant]
     Active Substance: METOPROLOL
     Indication: HYPERTENSION
     Dosage: UNK UNK, QD
     Route: 065
  2. ASPIRIN. [Concomitant]
     Active Substance: ASPIRIN
     Indication: PRODUCT USED FOR UNKNOWN INDICATION
     Dosage: UNK UNK, QD
     Route: 065
  3. TORASEMIDE [Interacting]
     Active Substance: TORSEMIDE
     Indication: HYPERTENSION
     Dosage: UNK UNK, QD
     Route: 065
  4. AMLODIPINE [Concomitant]
     Active Substance: AMLODIPINE BESYLATE
     Indication: PRODUCT USED FOR UNKNOWN INDICATION
     Dosage: UNK UNK, QD
     Route: 065
  5. MOXONIDINE [Concomitant]
     Active Substance: MOXONIDINE
     Indication: PRODUCT USED FOR UNKNOWN INDICATION
     Dosage: UNK UNK, QD
     Route: 065
  6. ROSUVASTATIN 40 MG [Interacting]
     Active Substance: ROSUVASTATIN
     Indication: DYSLIPIDAEMIA
     Dosage: 40 MILLIGRAM, QD
     Route: 065
  7. IRBESARTAN. [Suspect]
     Active Substance: IRBESARTAN
     Indication: HYPERTENSION
     Dosage: UNK UNK, QD
     Route: 065
  8. COLCHICINE 500 MICROGRAM [Interacting]
     Active Substance: COLCHICINE
     Indication: PERICARDITIS
     Dosage: 0.5 MILLIGRAM, BID
     Route: 065
  9. EZETIMIBE. [Concomitant]
     Active Substance: EZETIMIBE
     Indication: DYSLIPIDAEMIA
     Dosage: 10 MILLIGRAM, QD
     Route: 065
  10. HUMAN INSULIN ANALOG [Concomitant]
     Indication: DIABETES MELLITUS
     Dosage: UNK UNK, QD,INTERMEDIATE?ACTING HUMAN INSULIN ANALOG WITH A RAPIDACTING
     Route: 065

REACTIONS (8)
  - Hyperphosphataemia [Unknown]
  - Renal impairment [Recovered/Resolved]
  - Rhabdomyolysis [Recovered/Resolved]
  - Drug interaction [Recovered/Resolved]
  - Musculoskeletal toxicity [Recovered/Resolved]
  - Anaemia [Unknown]
  - Hypocalcaemia [Unknown]
  - Hypoalbuminaemia [Unknown]
